FAERS Safety Report 13923995 (Version 1)
Quarter: 2017Q3

REPORT INFORMATION
  Report Type: Spontaneous
  Country: US (occurrence: US)
  Receive Date: 20170831
  Receipt Date: 20170831
  Transmission Date: 20171127
  Serious: No
  Sender: FDA-Public Use
  Company Number: PHEH2017US026903

PATIENT
  Sex: Female

DRUGS (1)
  1. RECLAST [Suspect]
     Active Substance: ZOLEDRONIC ACID
     Indication: OSTEOPOROSIS
     Route: 041

REACTIONS (7)
  - Myalgia [Unknown]
  - Gait disturbance [Unknown]
  - Neck pain [Unknown]
  - Musculoskeletal pain [Unknown]
  - Arthralgia [Unknown]
  - Pain [Unknown]
  - Chest pain [Unknown]
